FAERS Safety Report 8596185-6 (Version None)
Quarter: 2012Q3

REPORT INFORMATION
  Report Type: 
  Country: None (occurrence: None)
  Receive Date: 20120815
  Receipt Date: 20120813
  Transmission Date: 20120928
  Serious: Yes (Hospitalization)
  Sender: FDA-Public Use
  Company Number: US-GLAXOSMITHKLINE-A0989373A

PATIENT
  Age: 68 Year
  Sex: Male

DRUGS (5)
  1. FLUTICASONE PROPIONATE [Suspect]
     Indication: PRODUCT USED FOR UNKNOWN INDICATION
     Dosage: 1PUFF TWICE PER DAY
     Route: 055
     Dates: start: 20100801
  2. COZAAR [Concomitant]
  3. SPIRIVA [Concomitant]
  4. CRESTOR [Concomitant]
  5. METOPROLOL TARTRATE [Concomitant]

REACTIONS (5)
  - DRUG INEFFECTIVE [None]
  - CANDIDIASIS [None]
  - DYSPHONIA [None]
  - PNEUMONIA [None]
  - OROPHARYNGEAL PAIN [None]
